FAERS Safety Report 10442836 (Version 1)
Quarter: 2014Q3

REPORT INFORMATION
  Report Type: Other
  Country: NL (occurrence: NL)
  Receive Date: 20140909
  Receipt Date: 20140909
  Transmission Date: 20150326
  Serious: Yes (Other)
  Sender: FDA-Public Use
  Company Number: NL-MYLAN-2014M1003511

PATIENT

DRUGS (2)
  1. ETHINYLESTRADIOL/LEVONORGESTREL TAB 20/100UG [Interacting]
     Active Substance: ETHINYL ESTRADIOL\LEVONORGESTREL
     Indication: CONTRACEPTION
     Dosage: 1 KEER PER DAG 1 STUK(S), EXTRA INFO: MET STOPWEK NA DAG 21
     Route: 048
     Dates: start: 2007
  2. TERBINAFINE 250MG [Suspect]
     Active Substance: TERBINAFINE
     Indication: ONYCHOMYCOSIS
     Dosage: 1 KEER PER DAG 1 STUK(S)
     Route: 048
     Dates: start: 20140627

REACTIONS (2)
  - Metrorrhagia [Recovering/Resolving]
  - Drug interaction [Recovering/Resolving]

NARRATIVE: CASE EVENT DATE: 20140820
